FAERS Safety Report 4659009-5 (Version None)
Quarter: 2005Q2

REPORT INFORMATION
  Report Type: 
  Country: None (occurrence: None)
  Receive Date: 20050511
  Receipt Date: 20050502
  Transmission Date: 20051028
  Serious: Yes (Hospitalization)
  Sender: FDA-Public Use
  Company Number: US-GLAXOSMITHKLINE-A0556917A

PATIENT
  Age: 18 Year
  Sex: Female
  Weight: 53.6 kg

DRUGS (2)
  1. WELLBUTRIN [Suspect]
     Indication: DRUG USE FOR UNKNOWN INDICATION
     Dosage: 900MG SINGLE DOSE
     Route: 048
     Dates: start: 20050418
  2. NO CONCURRENT MEDICATION [Concomitant]

REACTIONS (8)
  - ANXIETY [None]
  - CONVULSION [None]
  - FATIGUE [None]
  - HEART RATE INCREASED [None]
  - HYPOAESTHESIA [None]
  - OVERDOSE [None]
  - POSTURE ABNORMAL [None]
  - SELF-MEDICATION [None]
